FAERS Safety Report 25338670 (Version 1)
Quarter: 2025Q2

REPORT INFORMATION
  Report Type: Spontaneous
  Country: US (occurrence: US)
  Receive Date: 20250520
  Receipt Date: 20250520
  Transmission Date: 20250716
  Serious: Yes (Hospitalization)
  Sender: MALLINCKRODT
  Company Number: US-MALLINCKRODT-MNK202502787

PATIENT
  Age: 12 Month
  Sex: Male
  Weight: 33 kg

DRUGS (5)
  1. CORTICOTROPIN [Suspect]
     Active Substance: CORTICOTROPIN
     Indication: Infantile spasms
     Route: 030
     Dates: start: 20250123, end: 2025
  2. CORTICOTROPIN [Suspect]
     Active Substance: CORTICOTROPIN
     Route: 030
     Dates: start: 2025, end: 2025
  3. CORTICOTROPIN [Suspect]
     Active Substance: CORTICOTROPIN
     Route: 030
     Dates: start: 2025, end: 2025
  4. CORTICOTROPIN [Suspect]
     Active Substance: CORTICOTROPIN
     Route: 030
     Dates: start: 2025, end: 20250220
  5. KEPPRA [Concomitant]
     Active Substance: LEVETIRACETAM
     Indication: Product used for unknown indication

REACTIONS (1)
  - Partial seizures [Unknown]

NARRATIVE: CASE EVENT DATE: 20250311
